FAERS Safety Report 5051449-8 (Version None)
Quarter: 2006Q3

REPORT INFORMATION
  Report Type: 
  Country: None (occurrence: None)
  Receive Date: 20060710
  Receipt Date: 20060626
  Transmission Date: 20061208
  Serious: Yes (Hospitalization)
  Sender: FDA-Public Use
  Company Number: 225820

PATIENT
  Age: 66 Year
  Sex: Male
  Weight: 83.8 kg

DRUGS (12)
  1. BEVACIZUMAB OR PLACEBO(BEVACIZUMAB) PWDR + SOLVENT, INFUSION SOLN, 100 [Suspect]
     Indication: PROSTATE CANCER
     Dosage: 15 MG/KG, Q3W, INTRAVENOUS
     Route: 042
     Dates: start: 20060419, end: 20060419
  2. DOCETAXEL (DOCETAXEL) [Suspect]
     Indication: PROSTATE CANCER
     Dosage: 75 MG/M2, INTRAVENOUS
     Route: 042
     Dates: start: 20060419, end: 20060419
  3. PREDNISONE TAB [Suspect]
     Indication: PROSTATE CANCER
     Dosage: 5 MG, BID, ORAL
     Route: 048
  4. COZAAR [Concomitant]
  5. HYDROCHLOROTHIAZIDE [Concomitant]
  6. IBUPROFEN [Concomitant]
  7. ZOMETA [Concomitant]
  8. LUPRON [Concomitant]
  9. OS-CAL (CALCIUM CARBONATE) [Concomitant]
  10. FOLIC ACID [Concomitant]
  11. ACETAMINOPHEN [Concomitant]
  12. IBUPROFEN [Concomitant]

REACTIONS (15)
  - CARDIOVASCULAR DISORDER [None]
  - DISSEMINATED INTRAVASCULAR COAGULATION [None]
  - ECCHYMOSIS [None]
  - EMBOLISM [None]
  - HAEMODIALYSIS [None]
  - HYPOCALCAEMIA [None]
  - HYPONATRAEMIA [None]
  - ORBITAL OEDEMA [None]
  - RENAL CYST [None]
  - RENAL FAILURE ACUTE [None]
  - RENAL TUBULAR NECROSIS [None]
  - SWELLING [None]
  - SYNCOPE [None]
  - THROMBOTIC MICROANGIOPATHY [None]
  - VOMITING [None]
